FAERS Safety Report 4530934-9 (Version None)
Quarter: 2004Q4

REPORT INFORMATION
  Report Type: 
  Country: None (occurrence: None)
  Receive Date: 20041215
  Receipt Date: 20041130
  Transmission Date: 20050328
  Serious: Yes (Other)
  Sender: FDA-Public Use
  Company Number: 20037197-C624544-00

PATIENT
  Age: 20 Year
  Sex: Female
  Weight: 63.05 kg

DRUGS (1)
  1. 4B7867Q-ANTICOAGULANT SOD CITRATE SOL USP 250 ML [Suspect]
     Indication: PLASMAPHERESIS
     Dosage: IV
     Route: 042

REACTIONS (10)
  - ARTHRALGIA [None]
  - BUTTOCK PAIN [None]
  - FALL [None]
  - HEAD INJURY [None]
  - HEADACHE [None]
  - HYPOAESTHESIA [None]
  - NAUSEA [None]
  - PALLOR [None]
  - SYNCOPE [None]
  - VOMITING [None]
